FAERS Safety Report 24176036 (Version 1)
Quarter: 2024Q3

REPORT INFORMATION
  Report Type: Spontaneous
  Country: US (occurrence: US)
  Receive Date: 20240806
  Receipt Date: 20240806
  Transmission Date: 20241016
  Serious: No
  Sender: SANOFI AVENTIS
  Company Number: US-SA-SAC20240805000048

PATIENT
  Sex: Female
  Weight: 68 kg

DRUGS (15)
  1. DUPIXENT [Suspect]
     Active Substance: DUPILUMAB
     Indication: Dermatitis
     Dosage: 300MG,QOW
     Route: 058
  2. AREXVY [Concomitant]
     Active Substance: RECOMBINANT RESPIRATORY SYNCYTIAL VIRUS PRE-FUSION F PROTEIN ANTIGEN
     Dosage: AREXVY 120MCG/0.5 KIT
  3. PNEUMOVAX 23 [Concomitant]
     Active Substance: PNEUMOCOCCAL VACCINE, POLYVALENT 23
     Dosage: PNEUMOVAX 23 25MCG/0.5 SYRINGE
  4. VITAMIN D3 [Concomitant]
     Active Substance: CHOLECALCIFEROL
  5. PFIZER-BIONTECH COVID-19 VACCINE [Concomitant]
     Active Substance: TOZINAMERAN
     Dosage: FIZER COVID 2023-24 (5-11Y)EUA
  6. POTASSIUM [Concomitant]
     Active Substance: POTASSIUM
     Dosage: POTASSIUM 595(99)MG TABLET
  7. CALCIUM [Concomitant]
     Active Substance: CALCIUM
     Dosage: CALCIUM 500(1250) TAB CHEW
  8. SERTRALINE HYDROCHLORIDE [Concomitant]
     Active Substance: SERTRALINE HYDROCHLORIDE
  9. DICLOFENAC POTASSIUM [Concomitant]
     Active Substance: DICLOFENAC POTASSIUM
  10. ATORVASTATIN CALCIUM [Concomitant]
     Active Substance: ATORVASTATIN CALCIUM
  11. LEVOTHYROXINE SODIUM [Concomitant]
     Active Substance: LEVOTHYROXINE SODIUM
  12. TRIAMCINOLONE ACETONIDE [Concomitant]
     Active Substance: TRIAMCINOLONE ACETONIDE
  13. CLOBETASOL PROPIONATE [Concomitant]
     Active Substance: CLOBETASOL PROPIONATE
  14. PIMECROLIMUS [Concomitant]
     Active Substance: PIMECROLIMUS
     Dosage: PIMECROLIMUS 1 OH CREAM (G)
  15. AVEENO INTENSE RELIEF HAND [Concomitant]

REACTIONS (2)
  - Infected bite [Unknown]
  - Product use in unapproved indication [Unknown]
